FAERS Safety Report 8517744-2 (Version None)
Quarter: 2012Q3

REPORT INFORMATION
  Report Type: 
  Country: None (occurrence: None)
  Receive Date: 20120718
  Receipt Date: 20120713
  Transmission Date: 20120928
  Serious: No
  Sender: FDA-Public Use
  Company Number: US-BAYER-2012-071201

PATIENT
  Age: 69 Year
  Sex: Female

DRUGS (4)
  1. ALEVE (CAPLET) [Suspect]
  2. ASPIRIN [Suspect]
  3. ACETAMINOPHEN [Concomitant]
  4. ADVIL [Concomitant]

REACTIONS (1)
  - DYSPEPSIA [None]
